FAERS Safety Report 23170918 (Version 2)
Quarter: 2023Q4

REPORT INFORMATION
  Report Type: Spontaneous
  Country: US (occurrence: US)
  Receive Date: 20231110
  Receipt Date: 20231206
  Transmission Date: 20240110
  Serious: No
  Sender: FDA-Public Use
  Company Number: US-BIOGEN-2023BI01235164

PATIENT
  Age: 57 Year
  Sex: Male

DRUGS (1)
  1. VUMERITY [Suspect]
     Active Substance: DIROXIMEL FUMARATE
     Indication: Multiple sclerosis
     Route: 050
     Dates: start: 20210317

REACTIONS (4)
  - Meniscus injury [Unknown]
  - Knee deformity [Unknown]
  - Liver function test increased [Unknown]
  - Fatigue [Unknown]

NARRATIVE: CASE EVENT DATE: 20210916
